FAERS Safety Report 8598837-0 (Version None)
Quarter: 2012Q3

REPORT INFORMATION
  Report Type: 
  Country: None (occurrence: None)
  Receive Date: 20120816
  Receipt Date: 20120806
  Transmission Date: 20120928
  Serious: Yes (Hospitalization)
  Sender: FDA-Public Use
  Company Number: FR-GLAXOSMITHKLINE-B0820585A

PATIENT
  Sex: Female
  Weight: 55 kg

DRUGS (18)
  1. CORDARONE [Concomitant]
     Dosage: 200MG IN THE MORNING
     Route: 048
  2. RAMIPRIL [Suspect]
     Indication: PRODUCT USED FOR UNKNOWN INDICATION
     Dosage: 10MG TWICE PER DAY
     Route: 048
  3. COUMADIN [Concomitant]
     Dosage: 1MG PER DAY
     Route: 048
  4. LANTUS [Concomitant]
     Dosage: 10IU PER DAY
     Route: 058
  5. KALEORID LP [Concomitant]
     Dosage: 1200MG PER DAY
     Route: 048
  6. ACETAMINOPHEN [Concomitant]
     Route: 048
  7. ATORVASTATIN [Concomitant]
     Dosage: 20MG PER DAY
     Route: 048
  8. LASIX [Concomitant]
     Dosage: 40MG THREE TIMES PER DAY
     Route: 065
  9. BISOPROLOL FUMARATE [Suspect]
     Indication: PRODUCT USED FOR UNKNOWN INDICATION
     Dosage: 1.25MG PER DAY
     Route: 048
  10. TERCIAN [Concomitant]
     Indication: VASCULAR DEMENTIA
     Route: 048
     Dates: start: 20120105, end: 20120110
  11. BRICANYL [Concomitant]
     Dosage: 1UNIT THREE TIMES PER DAY
     Route: 055
     Dates: start: 20120327
  12. ATROVENT [Concomitant]
     Dosage: 1UNIT THREE TIMES PER DAY
     Route: 055
     Dates: start: 20120327
  13. PAROXETINE HCL [Suspect]
     Indication: PRODUCT USED FOR UNKNOWN INDICATION
     Dosage: 20MG PER DAY
     Route: 048
  14. NEXIUM [Concomitant]
     Dosage: 20MG PER DAY
     Route: 048
     Dates: start: 20120327
  15. CALCIDOSE VITAMIN D [Concomitant]
     Dosage: 2UNIT IN THE MORNING
     Route: 048
  16. RABEPRAZOLE SODIUM [Concomitant]
     Dosage: 20MG PER DAY
     Route: 065
  17. TIAPRIDAL [Suspect]
     Indication: VASCULAR DEMENTIA
     Route: 048
     Dates: start: 20120110
  18. LASIX [Suspect]
     Indication: PRODUCT USED FOR UNKNOWN INDICATION
     Dosage: 125MG TWICE PER DAY
     Route: 048

REACTIONS (7)
  - FACE INJURY [None]
  - FALL [None]
  - ABASIA [None]
  - HAEMATOMA [None]
  - MALAISE [None]
  - GENERAL PHYSICAL HEALTH DETERIORATION [None]
  - BALANCE DISORDER [None]
